FAERS Safety Report 5885307-3 (Version None)
Quarter: 2008Q3

REPORT INFORMATION
  Report Type: 
  Country: None (occurrence: None)
  Receive Date: 20080916
  Receipt Date: 20080904
  Transmission Date: 20090109
  Serious: Yes (Hospitalization)
  Sender: FDA-Public Use
  Company Number: US-ROCHE-471216

PATIENT
  Sex: Female
  Weight: 72.1 kg

DRUGS (25)
  1. METHOXY POLYETHYLENE GLYCOL-EPOETIN BETA [Suspect]
     Route: 042
     Dates: end: 20080731
  2. METHOXY POLYETHYLENE GLYCOL-EPOETIN BETA [Suspect]
     Route: 042
     Dates: start: 20040520
  3. METHOXY POLYETHYLENE GLYCOL-EPOETIN BETA [Suspect]
     Route: 042
  4. METHOXY POLYETHYLENE GLYCOL-EPOETIN BETA [Suspect]
     Route: 042
  5. FUROSEMIDE [Concomitant]
     Dosage: DOSE DECREASED TO 80 MG ON UNKNOWN DATE.
     Dates: start: 20030819
  6. FUROSEMIDE [Concomitant]
     Dates: start: 20080206
  7. METOPROLOL [Concomitant]
     Dosage: DOSE DECREASED TO 25 MG ON 17 AUGUST 2006.
     Dates: start: 20040429
  8. METOPROLOL [Concomitant]
     Dates: start: 20080320
  9. CLONIDINE [Concomitant]
     Dosage: DOSE REDUCED TO 0.1 MG ON 30 SEPTEMBER 2006.
     Dates: start: 20050322
  10. CLONIDINE [Concomitant]
     Dates: start: 20080320
  11. NEPHRO-VITE [Concomitant]
     Dates: start: 20031106
  12. TEMAZEPAM [Concomitant]
     Dates: start: 20041128
  13. NEURONTIN [Concomitant]
     Dates: start: 20051101
  14. SEVELAMER [Concomitant]
     Dosage: DOSE OF 7200 MG STARTED 17 OCTOBER 2006.
     Dates: start: 20051018
  15. MAGNEBIND [Concomitant]
     Dosage: REPORTED AS MAGNE BIND 300.
     Dates: start: 20051018
  16. CADUET [Concomitant]
     Dosage: REPORTED AS CADUET 5/20. DOSE OF 60 MG STARTED 21 SEPTEMBER 2006.
     Dates: start: 20050816
  17. ACETAMINOPHEN [Concomitant]
     Dates: start: 20030626
  18. AMIODARONE HCL [Concomitant]
     Dates: start: 20071201
  19. ASPIRIN [Concomitant]
     Dates: start: 20080320
  20. HYDROCODONE BITARTRATE [Concomitant]
     Dosage: TAKEN AS NEEDED.
     Dates: start: 20080624
  21. RENALVITE [Concomitant]
     Dates: start: 20080320
  22. CINACALCET [Concomitant]
     Dates: start: 20080520
  23. TEMAZEPAM [Concomitant]
     Dates: start: 20080320
  24. WARFARIN SODIUM [Concomitant]
     Dates: start: 20080115
  25. HECTOROL [Concomitant]
     Dosage: 1.5 MCG TAKEN EACH TREATMENT.
     Dates: start: 20080614

REACTIONS (2)
  - ARTHRALGIA [None]
  - OSTEONECROSIS [None]
